FAERS Safety Report 8765217 (Version 1)
Quarter: 2012Q4

REPORT INFORMATION
  Report Type: 
  Country: US (occurrence: US)
  Receive Date: 20120901
  Receipt Date: 20120901
  Transmission Date: 20130627
  Serious: No
  Sender: FDA-Public Use
  Company Number: US-PFIZER INC-2012211866

PATIENT
  Age: 65 Year
  Sex: Female

DRUGS (1)
  1. ADVIL [Suspect]
     Indication: ADNEXA UTERI PAIN
     Dosage: 2 UNK, UNK

REACTIONS (1)
  - Drug ineffective [Unknown]
